FAERS Safety Report 8297426-5 (Version None)
Quarter: 2012Q2

REPORT INFORMATION
  Report Type: 
  Country: None (occurrence: None)
  Receive Date: 20120419
  Receipt Date: 20120412
  Transmission Date: 20120825
  Serious: Yes (Other)
  Sender: FDA-Public Use
  Company Number: BR-PFIZER INC-2012093611

PATIENT
  Age: 39 Year
  Sex: Female
  Weight: 75 kg

DRUGS (1)
  1. DEPO-PROVERA [Suspect]
     Indication: CONTRACEPTION
     Dosage: 150 MG, EVERY 3 MONTHS
     Route: 030
     Dates: start: 20111005

REACTIONS (11)
  - IMPAIRED WORK ABILITY [None]
  - WEIGHT INCREASED [None]
  - IMPAIRED DRIVING ABILITY [None]
  - BREAST ENLARGEMENT [None]
  - BREAST CYST [None]
  - BREAST PAIN [None]
  - METRORRHAGIA [None]
  - MENORRHAGIA [None]
  - BREAST DISCOMFORT [None]
  - SWELLING [None]
  - BREAST DISCHARGE [None]
